FAERS Safety Report 7767053-4 (Version None)
Quarter: 2011Q3

REPORT INFORMATION
  Report Type: 
  Country: None (occurrence: None)
  Receive Date: 20110922
  Receipt Date: 20110622
  Transmission Date: 20111222
  Serious: No
  Sender: FDA-Public Use
  Company Number: US-ASTRAZENECA-2011SE37691

PATIENT
  Age: 37 Year
  Sex: Male

DRUGS (4)
  1. LITHIUM CARBONATE [Concomitant]
  2. CLONOPIN [Concomitant]
  3. SEROQUEL [Suspect]
     Indication: ANXIETY
     Route: 048
  4. SEROQUEL [Suspect]
     Indication: BIPOLAR DISORDER
     Route: 048

REACTIONS (2)
  - ANXIETY [None]
  - DRUG DOSE OMISSION [None]
